FAERS Safety Report 17244951 (Version 3)
Quarter: 2023Q4

REPORT INFORMATION
  Report Type: Report from Study
  Country: US (occurrence: None)
  Receive Date: 20200108
  Receipt Date: 20231110
  Transmission Date: 20240109
  Serious: Yes (Death)
  Sender: FDA-Public Use
  Company Number: US-ROCHE-2516857

PATIENT
  Age: 73 Year

DRUGS (1)
  1. ATEZOLIZUMAB [Suspect]
     Active Substance: ATEZOLIZUMAB
     Indication: Lung neoplasm malignant
     Dosage: MOST RECENT DOSE OF ATEZOLIZUMAB PRIOR TO EVENT ONSET.
     Route: 042
     Dates: start: 20191212

REACTIONS (5)
  - Dyspnoea [Fatal]
  - Abdominal abscess [Fatal]
  - Pain [Fatal]
  - Large intestine perforation [Fatal]
  - Pneumonia [Fatal]

NARRATIVE: CASE EVENT DATE: 20191221
